FAERS Safety Report 5935911-9 (Version None)
Quarter: 2008Q4

REPORT INFORMATION
  Report Type: 
  Country: None (occurrence: None)
  Receive Date: 20081030
  Receipt Date: 20080717
  Transmission Date: 20090506
  Serious: No
  Sender: FDA-Public Use
  Company Number: A0728335A

PATIENT
  Age: 51 Year
  Sex: Male

DRUGS (6)
  1. IMITREX [Suspect]
     Indication: MIGRAINE
     Dosage: 20MG AS REQUIRED
     Route: 045
     Dates: start: 20000101
  2. LEXAPRO [Concomitant]
  3. NEURONTIN [Concomitant]
  4. SEROQUEL [Concomitant]
  5. RITALIN [Concomitant]
  6. XANAX [Concomitant]

REACTIONS (5)
  - CHEST PAIN [None]
  - DRUG INEFFECTIVE [None]
  - DYSPNOEA [None]
  - HYPERHIDROSIS [None]
  - PRODUCT QUALITY ISSUE [None]
